FAERS Safety Report 14512268 (Version 2)
Quarter: 2018Q2

REPORT INFORMATION
  Report Type: Spontaneous
  Country: US (occurrence: US)
  Receive Date: 20180209
  Receipt Date: 20180510
  Transmission Date: 20180711
  Serious: Yes (Other)
  Sender: FDA-Public Use
  Company Number: US-SAOL THERAPEUTICS-2018SAO00069

PATIENT
  Age: 15 Year
  Sex: Female
  Weight: 44 kg

DRUGS (21)
  1. LIORESAL [Suspect]
     Active Substance: BACLOFEN
     Indication: MUSCLE SPASTICITY
     Dosage: 158.9 ?G, \DAY
     Route: 037
     Dates: start: 20171206
  2. ERYPED [Concomitant]
     Active Substance: ERYTHROMYCIN ETHYLSUCCINATE
  3. FLEET ENEMA [Concomitant]
     Active Substance: SODIUM PHOSPHATE, DIBASIC\SODIUM PHOSPHATE, MONOBASIC
     Dosage: UNK UNK, AS NEEDED
  4. FELBATOL [Concomitant]
     Active Substance: FELBAMATE
  5. LORATADINE. [Concomitant]
     Active Substance: LORATADINE
  6. LAMICTAL [Concomitant]
     Active Substance: LAMOTRIGINE
  7. DANTROLENE. [Concomitant]
     Active Substance: DANTROLENE SODIUM
  8. OLANZAPINE. [Concomitant]
     Active Substance: OLANZAPINE
  9. MELATONIN [Concomitant]
     Active Substance: MELATONIN
  10. MAGNESIUM CITRATE. [Concomitant]
     Active Substance: MAGNESIUM CITRATE
     Dosage: UNK UNK, AS NEEDED
  11. DEPO-PROVERA [Concomitant]
     Active Substance: MEDROXYPROGESTERONE ACETATE
     Dosage: UNK, 4X/YEAR
  12. DIAZEPAM. [Concomitant]
     Active Substance: DIAZEPAM
     Dosage: UNK, AS NEEDED
     Route: 054
  13. DIAZEPAM. [Concomitant]
     Active Substance: DIAZEPAM
     Dosage: UNK, 3X/DAY
     Route: 048
  14. MIRALAX [Concomitant]
     Active Substance: POLYETHYLENE GLYCOL 3350
     Dosage: PRN AND QD
  15. IBUPROFEN. [Concomitant]
     Active Substance: IBUPROFEN
     Dosage: UNK, AS NEEDED
  16. NYSTATIN. [Concomitant]
     Active Substance: NYSTATIN
     Dosage: PRN
  17. BACLOFEN. [Suspect]
     Active Substance: BACLOFEN
     Indication: MUSCLE SPASTICITY
     Route: 037
  18. TYLENOL [Concomitant]
     Active Substance: ACETAMINOPHEN
     Dosage: PRN
  19. LIORESAL [Suspect]
     Active Substance: BACLOFEN
     Dosage: 76.89 ?G, \DAY
     Dates: start: 20180114
  20. OMEPRAZOLE. [Concomitant]
     Active Substance: OMEPRAZOLE
  21. HYDROCORTISONE. [Concomitant]
     Active Substance: HYDROCORTISONE
     Dosage: PRN

REACTIONS (3)
  - Proteus infection [Unknown]
  - Implant site infection [Unknown]
  - Staphylococcal infection [Unknown]

NARRATIVE: CASE EVENT DATE: 20180112
